FAERS Safety Report 23269771 (Version 1)
Quarter: 2023Q4

REPORT INFORMATION
  Report Type: Spontaneous
  Country: CN (occurrence: CN)
  Receive Date: 20231207
  Receipt Date: 20231207
  Transmission Date: 20240110
  Serious: Yes (Other)
  Sender: FDA-Public Use
  Company Number: CN-ORGANON-O2312CHN000422

PATIENT
  Age: 67 Year
  Sex: Female

DRUGS (1)
  1. FOSAMAX [Suspect]
     Active Substance: ALENDRONATE SODIUM
     Indication: Osteoporosis
     Dosage: 70 MG, WEEKLY
     Route: 048
     Dates: start: 20231101, end: 20231115

REACTIONS (3)
  - Pain [Unknown]
  - Discomfort [Unknown]
  - Gait inability [Unknown]

NARRATIVE: CASE EVENT DATE: 20231116
